FAERS Safety Report 4449161-9 (Version None)
Quarter: 2004Q3

REPORT INFORMATION
  Report Type: 
  Country: None (occurrence: None)
  Receive Date: 20040913
  Receipt Date: 20040826
  Transmission Date: 20050211
  Serious: Yes (Hospitalization)
  Sender: FDA-Public Use
  Company Number: 04P-163-0271632-00

PATIENT
  Age: 70 Year
  Sex: Female

DRUGS (2)
  1. HUMIRA [Suspect]
     Indication: RHEUMATOID ARTHRITIS
     Dosage: 40 MG, 1 IN 2 WK, SUBCUTANEOUS
     Route: 058
     Dates: start: 20040301, end: 20040514
  2. ROFECOXIB [Concomitant]

REACTIONS (5)
  - DRUG RESISTANCE [None]
  - OPEN WOUND [None]
  - POSTOPERATIVE INFECTION [None]
  - STAPHYLOCOCCAL INFECTION [None]
  - WOUND INFECTION [None]
